FAERS Safety Report 17010275 (Version 1)
Quarter: 2019Q4

REPORT INFORMATION
  Report Type: Spontaneous
  Country: US (occurrence: US)
  Receive Date: 20191107
  Receipt Date: 20191107
  Transmission Date: 20200122
  Serious: Yes (Hospitalization)
  Sender: FDA-Public Use
  Company Number: None

PATIENT
  Age: 69 Year
  Sex: Female

DRUGS (3)
  1. AMLODIPINE TAB 5 MG [Concomitant]
  2. GABAPENTIN CAP 100 MG [Concomitant]
     Active Substance: GABAPENTIN
  3. GLATOPA [Suspect]
     Active Substance: GLATIRAMER ACETATE
     Indication: MULTIPLE SCLEROSIS
     Route: 058
     Dates: start: 20181106

REACTIONS (3)
  - Urinary incontinence [None]
  - Nephrolithiasis [None]
  - Pyrexia [None]

NARRATIVE: CASE EVENT DATE: 20191106
